FAERS Safety Report 4564016-7 (Version None)
Quarter: 2005Q1

REPORT INFORMATION
  Report Type: 
  Country: None (occurrence: None)
  Receive Date: 20050128
  Receipt Date: 20050117
  Transmission Date: 20050727
  Serious: Yes (Disabling)
  Sender: FDA-Public Use
  Company Number: US-MERCK-0501USA02560

PATIENT
  Age: 46 Year
  Sex: Male

DRUGS (1)
  1. SINGULAIR [Suspect]
     Indication: HYPERSENSITIVITY
     Route: 048
     Dates: start: 20050110, end: 20050111

REACTIONS (4)
  - ASTHENIA [None]
  - DYSPNOEA [None]
  - MYALGIA [None]
  - SINUS HEADACHE [None]
